FAERS Safety Report 5542080-6 (Version None)
Quarter: 2007Q4

REPORT INFORMATION
  Report Type: 
  Country: None (occurrence: None)
  Receive Date: 20071210
  Receipt Date: 20061208
  Transmission Date: 20080405
  Serious: No
  Sender: FDA-Public Use
  Company Number: US-AMGEN-US194628

PATIENT
  Sex: Female

DRUGS (15)
  1. ENBREL [Suspect]
     Indication: RHEUMATOID ARTHRITIS
     Route: 058
     Dates: start: 20060703
  2. METHOTREXATE [Concomitant]
     Route: 048
     Dates: start: 20051010
  3. NORVASC [Concomitant]
     Route: 065
     Dates: start: 20051010
  4. FLEXERIL [Concomitant]
     Route: 065
  5. FOSAMAX [Concomitant]
     Route: 065
     Dates: start: 20051010
  6. CALCIUM [Concomitant]
     Route: 065
     Dates: start: 20051010
  7. TYLENOL [Concomitant]
     Route: 065
     Dates: start: 20051010
  8. MAXZIDE [Concomitant]
     Route: 065
     Dates: start: 20051010
  9. ZANTAC [Concomitant]
     Route: 065
     Dates: start: 20051010
  10. FOLIC ACID [Concomitant]
     Route: 065
     Dates: start: 20051010
  11. NORFLEX [Concomitant]
     Route: 065
     Dates: start: 20051010
  12. TRAMADOL HCL [Concomitant]
     Route: 065
     Dates: start: 20060227
  13. SOMA [Concomitant]
     Route: 065
     Dates: start: 20060508
  14. RELAFEN [Concomitant]
     Route: 065
  15. LIPITOR [Concomitant]
     Route: 065
     Dates: start: 20060905

REACTIONS (1)
  - UPPER RESPIRATORY TRACT INFECTION [None]
